FAERS Safety Report 9995693 (Version 3)
Quarter: 2014Q1

REPORT INFORMATION
  Report Type: Spontaneous
  Country: DK (occurrence: None)
  Receive Date: 20140307
  Receipt Date: 20140314
  Transmission Date: 20141002
  Serious: Yes (Other)
  Sender: FDA-Public Use
  Company Number: E2B_7273531

PATIENT
  Age: 59 Year
  Sex: Female

DRUGS (1)
  1. EUTHYROX [Suspect]
     Indication: MYXOEDEMA
     Route: 048
     Dates: start: 20101115, end: 20131125

REACTIONS (17)
  - Mental impairment [None]
  - Mental impairment [None]
  - Myalgia [None]
  - Arthralgia [None]
  - Abdominal pain upper [None]
  - Weight increased [None]
  - Crying [None]
  - Night sweats [None]
  - Amnesia [None]
  - Disturbance in attention [None]
  - Hypersensitivity [None]
  - Fatigue [None]
  - Hyperacusis [None]
  - Hot flush [None]
  - Vomiting [None]
  - Diarrhoea [None]
  - Sleep disorder [None]
